FAERS Safety Report 10171913 (Version 3)
Quarter: 2021Q4

REPORT INFORMATION
  Report Type: Spontaneous
  Country: US (occurrence: US)
  Receive Date: 20140515
  Receipt Date: 20211214
  Transmission Date: 20220303
  Serious: Yes (Hospitalization, Other)
  Sender: FDA-Public Use
  Company Number: US-PFIZER INC-2014127854

PATIENT
  Age: 43 Year
  Sex: Female

DRUGS (31)
  1. NORVASC [Suspect]
     Active Substance: AMLODIPINE BESYLATE
     Indication: Pain
     Dosage: 10 MG, DAILY
     Route: 048
  2. NORVASC [Suspect]
     Active Substance: AMLODIPINE BESYLATE
     Indication: Staphylococcal infection
  3. CEFTRIAXONE [Suspect]
     Active Substance: CEFTRIAXONE
     Indication: Pain
     Dosage: UNK
  4. CEFTRIAXONE [Suspect]
     Active Substance: CEFTRIAXONE
     Indication: Staphylococcal infection
  5. KETOROLAC TROMETHAMINE [Suspect]
     Active Substance: KETOROLAC TROMETHAMINE
     Indication: Pain
     Dosage: UNK
  6. KETOROLAC TROMETHAMINE [Suspect]
     Active Substance: KETOROLAC TROMETHAMINE
     Indication: Staphylococcal infection
  7. METHYLPREDNISOLONE [Suspect]
     Active Substance: METHYLPREDNISOLONE
     Indication: Pain
     Dosage: UNK
  8. METHYLPREDNISOLONE [Suspect]
     Active Substance: METHYLPREDNISOLONE
     Indication: Staphylococcal infection
  9. DOXYCYCLINE HYCLATE [Suspect]
     Active Substance: DOXYCYCLINE HYCLATE
     Indication: Pain
     Dosage: UNK
  10. DOXYCYCLINE HYCLATE [Suspect]
     Active Substance: DOXYCYCLINE HYCLATE
     Indication: Staphylococcal infection
  11. CEFTAROLINE FOSAMIL [Suspect]
     Active Substance: CEFTAROLINE FOSAMIL
     Indication: Pain
     Dosage: UNK
  12. CEFTAROLINE FOSAMIL [Suspect]
     Active Substance: CEFTAROLINE FOSAMIL
     Indication: Staphylococcal infection
  13. VANCOCIN [Suspect]
     Active Substance: VANCOMYCIN HYDROCHLORIDE
     Indication: Staphylococcal infection
     Dosage: 1000 MG IN SODIUM CHLORIDE 250 ML IVPB
     Route: 042
  14. VANCOCIN [Suspect]
     Active Substance: VANCOMYCIN HYDROCHLORIDE
     Indication: Pain
  15. VANCOCIN [Suspect]
     Active Substance: VANCOMYCIN HYDROCHLORIDE
     Indication: Staphylococcal infection
  16. HYDRODIURIL [Suspect]
     Active Substance: HYDROCHLOROTHIAZIDE
     Indication: Pain
     Dosage: 25 MG, DAILY
     Route: 048
  17. HYDRODIURIL [Suspect]
     Active Substance: HYDROCHLOROTHIAZIDE
     Indication: Staphylococcal infection
  18. VICODIN [Suspect]
     Active Substance: ACETAMINOPHEN\HYDROCODONE BITARTRATE
     Indication: Pain
     Dosage: 1 DF, EVERY 4 HRS (5-500 MG PER TABLET EVERY 4 HOURS AS NEEDED)
     Route: 048
  19. VICODIN [Suspect]
     Active Substance: ACETAMINOPHEN\HYDROCODONE BITARTRATE
     Indication: Staphylococcal infection
  20. PRINIVIL [Suspect]
     Active Substance: LISINOPRIL
     Indication: Pain
     Dosage: 10 MG, DAILY
     Route: 048
  21. PRINIVIL [Suspect]
     Active Substance: LISINOPRIL
     Indication: Staphylococcal infection
  22. ZESTRIL [Suspect]
     Active Substance: LISINOPRIL
     Indication: Pain
     Dosage: 10 MG, DAILY
     Route: 048
  23. ZESTRIL [Suspect]
     Active Substance: LISINOPRIL
     Indication: Staphylococcal infection
  24. DAPTOMYCIN [Suspect]
     Active Substance: DAPTOMYCIN
     Indication: Pain
     Dosage: UNK
  25. DAPTOMYCIN [Suspect]
     Active Substance: DAPTOMYCIN
     Indication: Staphylococcal infection
  26. HYDROCODONE [Suspect]
     Active Substance: HYDROCODONE
     Indication: Pain
  27. HYDROCODONE [Suspect]
     Active Substance: HYDROCODONE
     Indication: Staphylococcal infection
  28. CUBICIN [Suspect]
     Active Substance: DAPTOMYCIN
     Indication: Pain
  29. CUBICIN [Suspect]
     Active Substance: DAPTOMYCIN
     Indication: Staphylococcal infection
  30. ACETAMINOPHEN [Suspect]
     Active Substance: ACETAMINOPHEN
     Indication: Pain
  31. ACETAMINOPHEN [Suspect]
     Active Substance: ACETAMINOPHEN
     Indication: Staphylococcal infection

REACTIONS (13)
  - Back pain [Unknown]
  - Pyrexia [Unknown]
  - Inflammatory marker increased [Unknown]
  - Tubulointerstitial nephritis [Unknown]
  - Fibrosis [Unknown]
  - Atrophy [Unknown]
  - Arteriosclerosis [Unknown]
  - Intervertebral discitis [Unknown]
  - Osteomyelitis acute [Unknown]
  - Osteonecrosis [Unknown]
  - Asymptomatic bacteriuria [Unknown]
  - Blood creatinine increased [Unknown]
  - Spinal stenosis [Unknown]
